FAERS Safety Report 7146199-8 (Version None)
Quarter: 2010Q4

REPORT INFORMATION
  Report Type: 
  Country: None (occurrence: None)
  Receive Date: 20101208
  Receipt Date: 20101206
  Transmission Date: 20110411
  Serious: Yes (Life-Threatening, Hospitalization)
  Sender: FDA-Public Use
  Company Number: GXKR2010DE13193

PATIENT
  Sex: Male
  Weight: 60 kg

DRUGS (3)
  1. DOXEPIN HCL [Suspect]
     Indication: SLEEP DISORDER
     Dosage: 50 MG, QD
     Route: 048
  2. ATRIPLA [Suspect]
     Dosage: 1 DF, QD
     Dates: start: 20080101
  3. LISINOPRIL [Concomitant]
     Indication: HYPERTENSION
     Dosage: 10 MG, QD
     Route: 048
     Dates: start: 20080101

REACTIONS (9)
  - CIRCULATORY COLLAPSE [None]
  - CONFUSIONAL STATE [None]
  - DRY MOUTH [None]
  - EPILEPSY [None]
  - FOAMING AT MOUTH [None]
  - MUSCLE SPASMS [None]
  - MYALGIA [None]
  - SLEEP DISORDER [None]
  - STOMATITIS [None]
